FAERS Safety Report 5749890-0 (Version None)
Quarter: 2008Q2

REPORT INFORMATION
  Report Type: 
  Country: None (occurrence: None)
  Receive Date: 20080520
  Receipt Date: 20080520
  Transmission Date: 20081010
  Serious: Yes (Hospitalization)
  Sender: FDA-Public Use
  Company Number: None

PATIENT
  Age: 63 Year
  Sex: Male
  Weight: 72.5755 kg

DRUGS (12)
  1. THALIDOMIDE [Suspect]
     Indication: COUGH
     Dosage: 100MCG ONCE A DAY QD ORAL PO  50 MCG; 100MCG
     Route: 048
     Dates: start: 20080416, end: 20080429
  2. THALIDOMIDE [Suspect]
     Indication: INTERSTITIAL LUNG DISEASE
     Dosage: 100MCG ONCE A DAY QD ORAL PO  50 MCG; 100MCG
     Route: 048
     Dates: start: 20080416, end: 20080429
  3. THALIDOMIDE [Suspect]
     Indication: COUGH
     Dosage: 100MCG ONCE A DAY QD ORAL PO  50 MCG; 100MCG
     Route: 048
     Dates: start: 20080430, end: 20080513
  4. THALIDOMIDE [Suspect]
     Indication: INTERSTITIAL LUNG DISEASE
     Dosage: 100MCG ONCE A DAY QD ORAL PO  50 MCG; 100MCG
     Route: 048
     Dates: start: 20080430, end: 20080513
  5. TRAZODONE HCL [Concomitant]
  6. NEXIUM [Concomitant]
  7. SIMVASTATIN [Concomitant]
  8. NAPROSYN [Concomitant]
  9. AMLODEPINE [Concomitant]
  10. BENZONATATE [Concomitant]
  11. PROPIONATE [Concomitant]
  12. TYLENOL [Concomitant]

REACTIONS (2)
  - DYSPNOEA [None]
  - INTERSTITIAL LUNG DISEASE [None]
